FAERS Safety Report 9758146 (Version 1)
Quarter: 2013Q4

REPORT INFORMATION
  Report Type: Spontaneous
  Country: US (occurrence: US)
  Receive Date: 20131216
  Receipt Date: 20131216
  Transmission Date: 20140711
  Serious: Yes (Other)
  Sender: FDA-Public Use
  Company Number: US-MYLANLABS-2013S1027189

PATIENT
  Age: 44 Year
  Sex: Female

DRUGS (7)
  1. CYCLOPHOSPHAMIDE [Suspect]
     Indication: PLASMABLASTIC LYMPHOMA
     Route: 065
  2. DOXORUBICIN [Suspect]
     Indication: PLASMABLASTIC LYMPHOMA
     Route: 065
  3. VINCRISTINE [Suspect]
     Indication: PLASMABLASTIC LYMPHOMA
     Route: 065
  4. PREDNISONE [Suspect]
     Indication: PLASMABLASTIC LYMPHOMA
     Route: 065
  5. IFOSFAMIDE [Suspect]
     Indication: PLASMABLASTIC LYMPHOMA
     Route: 065
  6. ETOPOSIDE [Suspect]
     Indication: PLASMABLASTIC LYMPHOMA
     Route: 065
  7. CARBOPLATIN [Suspect]
     Indication: PLASMABLASTIC LYMPHOMA
     Route: 065

REACTIONS (5)
  - Neutropenia [Unknown]
  - Bone marrow failure [Unknown]
  - Nephropathy toxic [Unknown]
  - Diarrhoea [Unknown]
  - Anaemia [Unknown]
